FAERS Safety Report 5986180-5 (Version None)
Quarter: 2008Q4

REPORT INFORMATION
  Report Type: 
  Country: None (occurrence: None)
  Receive Date: 20081209
  Receipt Date: 20081128
  Transmission Date: 20090506
  Serious: Yes (Other)
  Sender: FDA-Public Use
  Company Number: DE-BAXTER-2008BH013090

PATIENT
  Age: 67 Year
  Sex: Male

DRUGS (1)
  1. ENDOXAN BAXTER [Suspect]
     Indication: DRUG USE FOR UNKNOWN INDICATION
     Route: 042
     Dates: start: 20081126, end: 20081126

REACTIONS (3)
  - C-REACTIVE PROTEIN INCREASED [None]
  - LEUKOPENIA [None]
  - PYREXIA [None]
